FAERS Safety Report 4877580-5 (Version None)
Quarter: 2006Q1

REPORT INFORMATION
  Report Type: 
  Country: None (occurrence: None)
  Receive Date: 20060111
  Receipt Date: 20060103
  Transmission Date: 20060701
  Serious: Yes (Hospitalization)
  Sender: FDA-Public Use
  Company Number: FR-GLAXOSMITHKLINE-B0405923A

PATIENT
  Age: 22 Year
  Sex: Female

DRUGS (1)
  1. AUGMENTIN '125' [Suspect]
     Indication: TOOTH EXTRACTION
     Route: 048
     Dates: start: 20050505, end: 20050505

REACTIONS (6)
  - ANAPHYLACTOID REACTION [None]
  - ERYTHEMA [None]
  - LOSS OF CONSCIOUSNESS [None]
  - MALAISE [None]
  - PAINFUL RESPIRATION [None]
  - PALPITATIONS [None]
